FAERS Safety Report 19862316 (Version 1)
Quarter: 2021Q3

REPORT INFORMATION
  Report Type: Spontaneous
  Country: CN (occurrence: CN)
  Receive Date: 20210920
  Receipt Date: 20210920
  Transmission Date: 20211014
  Serious: Yes (Other)
  Sender: FDA-Public Use
  Company Number: CN-BAXTER-2021BAX029035

PATIENT
  Age: 70 Year
  Sex: Male

DRUGS (6)
  1. VINDESINE SULFATE [Suspect]
     Active Substance: VINDESINE SULFATE
     Indication: NON-HODGKIN^S LYMPHOMA
     Dosage: 0.9% SODIUM CHLORIDE INJECTION 100ML + VINDESINE SULFATE FOR INJECTION 4 MG
     Route: 041
     Dates: start: 20210713, end: 20210713
  2. 0.9% SODIUM CHLORIDE INJECTION [Suspect]
     Active Substance: SODIUM CHLORIDE
     Dosage: 0.9% SODIUM CHLORIDE INJECTION 100ML + VINDESINE SULFATE FOR INJECTION 4 MG
     Route: 041
     Dates: start: 20210713, end: 20210713
  3. ENDOXAN [Suspect]
     Active Substance: CYCLOPHOSPHAMIDE
     Indication: NON-HODGKIN^S LYMPHOMA
     Dosage: 0.9% SODIUM CHLORIDE INJECTION 250ML + CYCLOPHOSPHAMIDE FOR INJECTION 1.2G
     Route: 041
     Dates: start: 20210713, end: 20210713
  4. 5% GLUCOSE  INJECTION [Suspect]
     Active Substance: DEXTROSE
     Indication: MEDICATION DILUTION
     Dosage: 5% GLUCOSE INJECTION 250ML + EPIRUBICIN HYDROCHLORIDE FOR INJECTION 120 MG
     Route: 041
     Dates: start: 20210713, end: 20210713
  5. EPIRUBICIN HYDROCHLORIDE. [Suspect]
     Active Substance: EPIRUBICIN HYDROCHLORIDE
     Indication: NON-HODGKIN^S LYMPHOMA
     Dosage: 5% GLUCOSE INJECTION 250ML + EPIRUBICIN HYDROCHLORIDE FOR INJECTION 120 MG
     Route: 041
     Dates: start: 20210713, end: 20210713
  6. 0.9% SODIUM CHLORIDE INJECTION [Suspect]
     Active Substance: SODIUM CHLORIDE
     Indication: MEDICATION DILUTION
     Dosage: 0.9% SODIUM CHLORIDE INJECTION 250ML + CYCLOPHOSPHAMIDE FOR INJECTION 1.2G
     Route: 041
     Dates: start: 20210713, end: 20210713

REACTIONS (3)
  - Myelosuppression [Recovering/Resolving]
  - Leukopenia [Recovering/Resolving]
  - Neutropenia [Recovering/Resolving]

NARRATIVE: CASE EVENT DATE: 20210721
